FAERS Safety Report 13513041 (Version 4)
Quarter: 2019Q3

REPORT INFORMATION
  Report Type: Report from Study
  Country: CZ (occurrence: CZ)
  Receive Date: 20170504
  Receipt Date: 20190912
  Transmission Date: 20191004
  Serious: Yes (Hospitalization)
  Sender: FDA-Public Use
  Company Number: CZ-ROCHE-1930518

PATIENT
  Age: 70 Year
  Sex: Female
  Weight: 68 kg

DRUGS (5)
  1. HELIDES [Concomitant]
     Indication: IDIOPATHIC PULMONARY FIBROSIS
     Route: 048
     Dates: start: 2016
  2. ECOBEC [Concomitant]
     Active Substance: BECLOMETHASONE DIPROPIONATE
     Indication: ASTHMA
     Route: 055
     Dates: start: 2016
  3. NAC AL [Concomitant]
     Indication: IDIOPATHIC PULMONARY FIBROSIS
     Route: 048
     Dates: start: 2016
  4. PIRFENIDONE. [Suspect]
     Active Substance: PIRFENIDONE
     Indication: IDIOPATHIC PULMONARY FIBROSIS
     Dosage: 3 CAPSULES 3 TIMES A DAY
     Route: 048
     Dates: start: 20160405, end: 201608
  5. LOZAP [LOSARTAN POTASSIUM] [Concomitant]
     Indication: HYPERTENSION
     Route: 048
     Dates: start: 2015

REACTIONS (2)
  - Photosensitivity reaction [Recovered/Resolved]
  - Solar dermatitis [Recovered/Resolved]

NARRATIVE: CASE EVENT DATE: 201608
